FAERS Safety Report 11330907 (Version 1)
Quarter: 2015Q3

REPORT INFORMATION
  Report Type: Spontaneous
  Country: US (occurrence: None)
  Receive Date: 20150730
  Receipt Date: 20150730
  Transmission Date: 20151125
  Serious: Yes (Other)
  Sender: FDA-Public Use
  Company Number: None

PATIENT
  Age: 53 Year
  Sex: Female
  Weight: 81.65 kg

DRUGS (1)
  1. CEPHALEXIN. [Suspect]
     Active Substance: CEPHALEXIN
     Indication: PRODUCT USED FOR UNKNOWN INDICATION
     Route: 048
     Dates: start: 20150708, end: 20150709

REACTIONS (7)
  - Paraesthesia [None]
  - Swelling [None]
  - Erythema [None]
  - Pruritus [None]
  - Mouth swelling [None]
  - Oral mucosal discolouration [None]
  - Skin discolouration [None]

NARRATIVE: CASE EVENT DATE: 20150710
